FAERS Safety Report 9864600 (Version 2)
Quarter: 2014Q1

REPORT INFORMATION
  Report Type: Spontaneous
  Country: US (occurrence: US)
  Receive Date: 20140203
  Receipt Date: 20140203
  Transmission Date: 20141002
  Serious: No
  Sender: FDA-Public Use
  Company Number: US-AMGEN-USASP2014000719

PATIENT
  Age: 49 Year
  Sex: Female
  Weight: 73.02 kg

DRUGS (8)
  1. ENBREL [Suspect]
     Indication: PSORIATIC ARTHROPATHY
     Dosage: 50 MG, QWK
     Route: 058
     Dates: start: 20130701
  2. ADVIL                              /00109201/ [Concomitant]
     Dosage: 800 MG, TID
     Route: 048
  3. MOTRIN [Concomitant]
     Dosage: 800 MG, TID
     Route: 048
  4. RHEUMATREX                         /00113801/ [Concomitant]
     Dosage: 2.5 MG, UNK 8 TABLETS EVERY 7 DAYS
     Route: 048
  5. CELEXA                             /00582602/ [Concomitant]
     Dosage: 20 MG, QD
     Route: 048
  6. INDERAL [Concomitant]
     Dosage: 20 MG, BID
     Route: 048
  7. SEROQUEL [Concomitant]
     Dosage: 25 MG, AS NECESSARY
     Route: 048
  8. FOLVITE                            /00024201/ [Concomitant]
     Dosage: 1 MG, QD
     Route: 048

REACTIONS (2)
  - Incorrect dose administered [Recovered/Resolved]
  - Injection site pain [Not Recovered/Not Resolved]
